FAERS Safety Report 10120086 (Version 1)
Quarter: 2014Q2

REPORT INFORMATION
  Report Type: Spontaneous
  Country: US (occurrence: US)
  Receive Date: 20140425
  Receipt Date: 20140425
  Transmission Date: 20141212
  Serious: No
  Sender: FDA-Public Use
  Company Number: US-PFIZER INC-2014112261

PATIENT
  Age: 43 Year
  Sex: Female

DRUGS (4)
  1. TESSALON [Suspect]
     Dosage: 100 MG, THREE TIMES A DAY
  2. PATANOL [Suspect]
     Dosage: UNK
  3. SYNTHROID [Suspect]
     Dosage: UNK
  4. TIROSINT [Suspect]
     Dosage: UNK

REACTIONS (1)
  - Drug hypersensitivity [Unknown]
